FAERS Safety Report 7267008-2 (Version None)
Quarter: 2011Q1

REPORT INFORMATION
  Report Type: 
  Country: None (occurrence: None)
  Receive Date: 20110201
  Receipt Date: 20110120
  Transmission Date: 20110831
  Serious: Yes (Other)
  Sender: FDA-Public Use
  Company Number: JP-JNJFOC-20110106357

PATIENT
  Age: 16 Year
  Sex: Male
  Weight: 37 kg

DRUGS (5)
  1. REMICADE [Suspect]
     Dosage: 4TH INFUSION
     Route: 042
  2. NSAID [Concomitant]
     Indication: ANKYLOSING SPONDYLITIS
  3. ISCOTIN [Concomitant]
     Indication: ANTIBIOTIC PROPHYLAXIS
  4. REMICADE [Suspect]
     Indication: ANKYLOSING SPONDYLITIS
     Dosage: TOTAL 3 INFUSIONS
     Route: 042
  5. REMICADE [Suspect]
     Dosage: 5TH INFUSION
     Route: 042

REACTIONS (2)
  - URTICARIA [None]
  - INFUSION RELATED REACTION [None]
